FAERS Safety Report 15354617 (Version 1)
Quarter: 2018Q3

REPORT INFORMATION
  Report Type: Spontaneous
  Country: US (occurrence: US)
  Receive Date: 20180906
  Receipt Date: 20180906
  Transmission Date: 20181010
  Serious: Yes (Other)
  Sender: FDA-Public Use
  Company Number: US-ORION CORPORATION ORION PHARMA-ENTC2018-0285

PATIENT
  Age: 77 Year
  Sex: Male

DRUGS (2)
  1. STALEVO [Suspect]
     Active Substance: CARBIDOPA\ENTACAPONE\LEVODOPA
     Indication: PRODUCT USED FOR UNKNOWN INDICATION
     Route: 065
  2. AZILECT [Concomitant]
     Active Substance: RASAGILINE MESYLATE
     Route: 065

REACTIONS (3)
  - Incorrect dose administered [Unknown]
  - Mental impairment [Unknown]
  - Agitation [Unknown]

NARRATIVE: CASE EVENT DATE: 201611
